FAERS Safety Report 8485653-3 (Version None)
Quarter: 2012Q3

REPORT INFORMATION
  Report Type: 
  Country: None (occurrence: None)
  Receive Date: 20120703
  Receipt Date: 20120629
  Transmission Date: 20120928
  Serious: Yes (Hospitalization)
  Sender: FDA-Public Use
  Company Number: JP-B.I. PHARMACEUTICALS,INC./RIDGEFIELD-2012-BP-13187NB

PATIENT
  Sex: Female
  Weight: 37.75 kg

DRUGS (8)
  1. ALFAROL [Concomitant]
     Indication: OSTEOPOROSIS
     Dosage: 1 MG
     Route: 048
  2. GLUCONSAN K [Concomitant]
     Indication: HYPOKALAEMIA
     Dosage: 9 G
     Route: 048
     Dates: start: 20120517
  3. MAGMITT [Concomitant]
     Indication: CONSTIPATION
     Dosage: 1000 MG
     Route: 048
     Dates: start: 20120517, end: 20120605
  4. ARICEPT ODT [Concomitant]
     Indication: DEMENTIA
     Route: 048
     Dates: start: 20120517
  5. LASIX [Concomitant]
     Indication: ATRIAL FIBRILLATION
     Dosage: 40 MG
     Route: 048
     Dates: start: 20120517
  6. ALDACTONE [Concomitant]
     Indication: ATRIAL FIBRILLATION
     Dosage: 25 MG
     Route: 048
     Dates: start: 20120517
  7. VITAMIN B12 [Concomitant]
     Indication: SPINAL COMPRESSION FRACTURE
     Dosage: 1000 MCG
     Route: 048
     Dates: start: 20120517
  8. PRADAXA [Suspect]
     Indication: EMBOLIC STROKE
     Dosage: 220 MG
     Route: 048
     Dates: start: 20120515, end: 20120530

REACTIONS (1)
  - INTERSTITIAL LUNG DISEASE [None]
